FAERS Safety Report 10184086 (Version 1)
Quarter: 2014Q2

REPORT INFORMATION
  Report Type: Spontaneous
  Country: US (occurrence: US)
  Receive Date: 20140520
  Receipt Date: 20140520
  Transmission Date: 20141212
  Serious: No
  Sender: FDA-Public Use
  Company Number: US-009507513-1405USA009161

PATIENT
  Age: 71 Year
  Sex: Male

DRUGS (1)
  1. ASMANEX TWISTHALER [Suspect]
     Indication: ASTHMA
     Dosage: 220 MICROGRAM, QD
     Route: 048

REACTIONS (1)
  - Oral mucosal erythema [Recovering/Resolving]
